FAERS Safety Report 11938632 (Version 2)
Quarter: 2016Q1

REPORT INFORMATION
  Report Type: Spontaneous
  Country: US (occurrence: US)
  Receive Date: 20160122
  Receipt Date: 20160212
  Transmission Date: 20160526
  Serious: No
  Sender: FDA-Public Use
  Company Number: US-ASTRAZENECA-2015SF29731

PATIENT
  Age: 79 Year
  Sex: Female
  Weight: 66.2 kg

DRUGS (2)
  1. NEXIUM 24HR [Suspect]
     Active Substance: ESOMEPRAZOLE MAGNESIUM
     Indication: GASTROOESOPHAGEAL REFLUX DISEASE
     Dosage: THREE TIMES A WEEK, ONE CAPSULE AT NIGHT ON MONDAY, WEDNESDAY AND FRIDAY
     Route: 048
     Dates: start: 201510
  2. NEXIUM 24HR [Suspect]
     Active Substance: ESOMEPRAZOLE MAGNESIUM
     Indication: GASTROOESOPHAGEAL REFLUX DISEASE
     Route: 048
     Dates: start: 201406

REACTIONS (5)
  - Laryngeal polyp [Unknown]
  - Product packaging issue [Unknown]
  - Intentional product misuse [Unknown]
  - Intestinal polyp [Unknown]
  - Product use issue [Not Recovered/Not Resolved]

NARRATIVE: CASE EVENT DATE: 201510
